FAERS Safety Report 16624268 (Version 4)
Quarter: 2019Q4

REPORT INFORMATION
  Report Type: Report from Study
  Country: CN (occurrence: CN)
  Receive Date: 20190724
  Receipt Date: 20191122
  Transmission Date: 20200122
  Serious: Yes (Hospitalization)
  Sender: FDA-Public Use
  Company Number: CN-ROCHE-2358175

PATIENT
  Age: 71 Year
  Sex: Male
  Weight: 60 kg

DRUGS (13)
  1. CEFOTIAM HYDROCHLORIDE [Concomitant]
     Active Substance: CEFOTIAM HYDROCHLORIDE
     Indication: PYREXIA
     Dosage: UNKNOWN
     Route: 042
     Dates: start: 20190620, end: 20190627
  2. AMBROXOL HYDROCHLORIDE;GLUCOSE [Concomitant]
     Indication: PNEUMONIA
     Dosage: UNKNOWN
     Route: 042
     Dates: start: 20190604, end: 20190704
  3. OMEPRAZOLE SODIUM [Concomitant]
     Active Substance: OMEPRAZOLE SODIUM
     Indication: PNEUMONIA
     Route: 042
     Dates: start: 20190711, end: 20190714
  4. GLUCOSE AND SODIUM CHLORIDE [Concomitant]
     Active Substance: DEXTROSE\SODIUM CHLORIDE
     Indication: PYREXIA
     Dosage: UNKNOWN
     Route: 042
     Dates: start: 20190620, end: 20190627
  5. OMEPRAZOLE SODIUM [Concomitant]
     Active Substance: OMEPRAZOLE SODIUM
     Indication: PYREXIA
     Dosage: UNKNOWN
     Route: 042
     Dates: start: 20190620, end: 20190620
  6. ATEZOLIZUMAB. [Suspect]
     Active Substance: ATEZOLIZUMAB
     Indication: NON-SMALL CELL LUNG CANCER
     Dosage: DATE OF MOST RECENT DOSE OF ATEZOLIZUMAB PRIOR TO AE ONSET: 09/JUL/2019
     Route: 041
     Dates: start: 20180928
  7. ASPIRIN [ACETYLSALICYLIC ACID] [Concomitant]
     Active Substance: ASPIRIN
     Route: 048
     Dates: start: 2014
  8. IBUPROFEN. [Concomitant]
     Active Substance: IBUPROFEN
     Indication: PYREXIA
     Route: 048
     Dates: start: 20190620, end: 20190620
  9. AMBROXOL HYDROCHLORIDE;GLUCOSE [Concomitant]
     Indication: PYREXIA
     Dosage: UNKNOWN
     Route: 042
     Dates: start: 20190628, end: 20190630
  10. OMEPRAZOLE SODIUM [Concomitant]
     Active Substance: OMEPRAZOLE SODIUM
     Route: 042
     Dates: start: 20190704, end: 20190708
  11. GINKGO LEAF [Concomitant]
     Route: 048
     Dates: start: 2014
  12. CEFACLOR. [Concomitant]
     Active Substance: CEFACLOR
     Route: 048
     Dates: start: 20180905, end: 20180907
  13. AZLOCILLIN SODIUM. [Concomitant]
     Active Substance: AZLOCILLIN SODIUM
     Indication: PYREXIA
     Dosage: UNKNOWN
     Route: 042
     Dates: start: 20190628, end: 20190630

REACTIONS (1)
  - Pneumonia [Recovered/Resolved]

NARRATIVE: CASE EVENT DATE: 20190704
